FAERS Safety Report 21733329 (Version 2)
Quarter: 2022Q4

REPORT INFORMATION
  Report Type: Report from Study
  Country: US (occurrence: None)
  Receive Date: 20221215
  Receipt Date: 20221229
  Transmission Date: 20230113
  Serious: Yes (Other)
  Sender: FDA-Public Use
  Company Number: US-Merck Healthcare KGaA-9366523

PATIENT
  Sex: Female

DRUGS (2)
  1. MAVENCLAD [Suspect]
     Active Substance: CLADRIBINE
     Indication: Multiple sclerosis
     Dosage: YEAR ONE MONTH ONE THERAPY
     Route: 048
     Dates: start: 20221114, end: 20221118
  2. MAVENCLAD [Suspect]
     Active Substance: CLADRIBINE
     Dosage: YEAR ONE MONTH TWO THERAPY
     Route: 048
     Dates: end: 20221220

REACTIONS (8)
  - Myelin oligodendrocyte glycoprotein antibody-associated disease [Unknown]
  - Magnetic resonance imaging abnormal [Unknown]
  - Multiple sclerosis relapse [Unknown]
  - Abdominal discomfort [Unknown]
  - Irritability [Recovering/Resolving]
  - Lethargy [Recovering/Resolving]
  - Insomnia [Unknown]
  - Arthralgia [Not Recovered/Not Resolved]
